FAERS Safety Report 4461557-8 (Version None)
Quarter: 2004Q3

REPORT INFORMATION
  Report Type: 
  Country: None (occurrence: None)
  Receive Date: 20040910
  Receipt Date: 20040106
  Transmission Date: 20050211
  Serious: Yes (Hospitalization)
  Sender: FDA-Public Use
  Company Number: TNZUS200400002 (0)

PATIENT
  Age: 61 Year
  Sex: Male

DRUGS (3)
  1. INNOHEP [Suspect]
     Indication: DEEP VEIN THROMBOSIS
     Dosage: 14000 IU, SUBCUTANEOUS
     Route: 058
     Dates: start: 20031104, end: 20031112
  2. LOVENOX [Concomitant]
  3. LOVENOX [Concomitant]

REACTIONS (1)
  - DEEP VEIN THROMBOSIS [None]
